FAERS Safety Report 7092706-3 (Version None)
Quarter: 2010Q4

REPORT INFORMATION
  Report Type: 
  Country: None (occurrence: None)
  Receive Date: 20101110
  Receipt Date: 20101028
  Transmission Date: 20110411
  Serious: Yes (Hospitalization)
  Sender: FDA-Public Use
  Company Number: US-ELI_LILLY_AND_COMPANY-US201010001768

PATIENT
  Sex: Female

DRUGS (4)
  1. FORTEO [Suspect]
     Indication: OSTEOPOROSIS
     Dosage: 20 UG, DAILY (1/D)
  2. LISINOPRIL [Concomitant]
  3. ASPIRIN [Concomitant]
     Dosage: 81 MG, UNK
  4. VITAMIN D [Concomitant]
     Dosage: 2000 U, UNK

REACTIONS (3)
  - DIVERTICULITIS [None]
  - HOSPITALISATION [None]
  - PELVIC ABSCESS [None]
